FAERS Safety Report 9551798 (Version 2)
Quarter: 2013Q3

REPORT INFORMATION
  Report Type: Spontaneous
  Country: US (occurrence: US)
  Receive Date: 20130925
  Receipt Date: 20130925
  Transmission Date: 20140515
  Serious: No
  Sender: FDA-Public Use
  Company Number: US-MYLANLABS-2012S1016129

PATIENT
  Age: 39 Year
  Sex: Male

DRUGS (1)
  1. FLUOXETINE [Suspect]
     Indication: OBSESSIVE-COMPULSIVE DISORDER
     Route: 048

REACTIONS (3)
  - Sinus disorder [Not Recovered/Not Resolved]
  - Unevaluable event [Not Recovered/Not Resolved]
  - Unevaluable event [Not Recovered/Not Resolved]
